FAERS Safety Report 4293576-9 (Version None)
Quarter: 2004Q1

REPORT INFORMATION
  Report Type: 
  Country: None (occurrence: None)
  Receive Date: 20040212
  Receipt Date: 20030620
  Transmission Date: 20041129
  Serious: No
  Sender: FDA-Public Use
  Company Number: US-GLAXOSMITHKLINE-A0415169A

PATIENT
  Age: 37 Year
  Sex: Female
  Weight: 60.9 kg

DRUGS (1)
  1. PAXIL [Suspect]
     Dosage: 20MG PER DAY
     Route: 065
     Dates: start: 19940501, end: 20001201

REACTIONS (3)
  - CONSTIPATION [None]
  - DISTURBANCE IN SEXUAL AROUSAL [None]
  - WEIGHT INCREASED [None]
